FAERS Safety Report 5694579-X (Version None)
Quarter: 2008Q2

REPORT INFORMATION
  Report Type: 
  Country: None (occurrence: None)
  Receive Date: 20080404
  Receipt Date: 20080326
  Transmission Date: 20081010
  Serious: Yes (Hospitalization, Disabling)
  Sender: FDA-Public Use
  Company Number: US-ROCHE-515082

PATIENT
  Sex: Female

DRUGS (2)
  1. BONIVA [Suspect]
     Indication: ARTHRITIS
     Route: 065
     Dates: start: 20060401
  2. CALCIUM [Concomitant]
     Dosage: DRUG REPORTED AS: MIA CALCIUM

REACTIONS (6)
  - ASTHENIA [None]
  - FALL [None]
  - JOINT INJURY [None]
  - MALAISE [None]
  - PAIN IN EXTREMITY [None]
  - PHYSICAL DISABILITY [None]
